FAERS Safety Report 5245173-6 (Version None)
Quarter: 2007Q1

REPORT INFORMATION
  Report Type: 
  Country: None (occurrence: None)
  Receive Date: 20070223
  Receipt Date: 20070214
  Transmission Date: 20070707
  Serious: Yes (Other)
  Sender: FDA-Public Use
  Company Number: US-ROCHE-479957

PATIENT
  Age: 5 Year

DRUGS (2)
  1. TAMIFLU [Suspect]
     Dosage: DOSING AMOUNTS REPORTED AS 25 MG AND 45 MG. 45 MG WAS AT 11:00 HRS AND THE 25 MG WAS AT 13:55 HRS.
     Route: 065
     Dates: end: 20070123
  2. TYLENOL [Concomitant]

REACTIONS (2)
  - HALLUCINATION [None]
  - PYREXIA [None]
